FAERS Safety Report 11418501 (Version 1)
Quarter: 2015Q3

REPORT INFORMATION
  Report Type: Report from Study
  Country: US (occurrence: US)
  Receive Date: 20150826
  Receipt Date: 20150826
  Transmission Date: 20151125
  Serious: Yes (Other)
  Sender: FDA-Public Use
  Company Number: US-AMGEN-USASP2015086474

PATIENT
  Age: 21 Year
  Sex: Female

DRUGS (1)
  1. ENBREL [Suspect]
     Active Substance: ETANERCEPT
     Indication: RHEUMATOID ARTHRITIS
     Dosage: 50 MG, EVERY FEW MONTHS OR FEEL THE PAIN FROM RA
     Route: 065
     Dates: start: 20081215

REACTIONS (2)
  - Intentional product misuse [Unknown]
  - Rheumatoid arthritis [Unknown]
